FAERS Safety Report 18480665 (Version 1)
Quarter: 2020Q4

REPORT INFORMATION
  Report Type: Report from Study
  Country: None (occurrence: BE)
  Receive Date: 20201109
  Receipt Date: 20201109
  Transmission Date: 20210114
  Serious: Yes (Hospitalization, Other)
  Sender: FDA-Public Use
  Company Number: BE-ABBVIE-20K-013-3641903-00

PATIENT
  Age: 74 Year
  Sex: Male
  Weight: 64 kg

DRUGS (5)
  1. DUODOPA [Suspect]
     Active Substance: CARBIDOPA\LEVODOPA
     Indication: PARKINSON^S DISEASE
     Route: 050
     Dates: start: 20171113, end: 20200831
  2. PANTOMED [Concomitant]
     Indication: PRODUCT USED FOR UNKNOWN INDICATION
  3. PRADAXA [Concomitant]
     Active Substance: DABIGATRAN ETEXILATE MESYLATE
     Indication: PRODUCT USED FOR UNKNOWN INDICATION
  4. MIRTAZAPINE. [Concomitant]
     Active Substance: MIRTAZAPINE
     Indication: PRODUCT USED FOR UNKNOWN INDICATION
  5. DUODOPA [Suspect]
     Active Substance: CARBIDOPA\LEVODOPA
     Dosage: MD=8.5ML, CD=2.5ML/HR DURING 16HRS, ED=1.5ML
     Route: 050
     Dates: start: 20200831

REACTIONS (1)
  - COVID-19 [Recovered/Resolved]
